FAERS Safety Report 7828769-4 (Version None)
Quarter: 2011Q4

REPORT INFORMATION
  Report Type: 
  Country: None (occurrence: None)
  Receive Date: 20111020
  Receipt Date: 20110218
  Transmission Date: 20120403
  Serious: No
  Sender: FDA-Public Use
  Company Number: US-MYLANLABS-2011S1003599

PATIENT
  Sex: Female

DRUGS (1)
  1. CARVEDILOL [Suspect]
     Indication: HYPERTENSION
     Route: 048

REACTIONS (4)
  - DRUG INEFFECTIVE [None]
  - BLOOD PRESSURE INCREASED [None]
  - HEAD DISCOMFORT [None]
  - FEELING ABNORMAL [None]
